FAERS Safety Report 5518422-4 (Version None)
Quarter: 2007Q4

REPORT INFORMATION
  Report Type: 
  Country: None (occurrence: None)
  Receive Date: 20071113
  Receipt Date: 20071113
  Transmission Date: 20080405
  Serious: Yes (Disabling)
  Sender: FDA-Public Use
  Company Number: None

PATIENT
  Age: 50 Year
  Sex: Male

DRUGS (3)
  1. WARFARIN SODIUM [Suspect]
     Indication: DEEP VEIN THROMBOSIS
     Dosage: 5MG AND 7.5MG 7.5MG FRI, 5MG AOD PO LONGTERM, OVER A YEAR
     Route: 048
  2. FLUCONAZOLE [Suspect]
     Indication: WOUND INFECTION
     Dosage: 200MG DAILY PO
     Route: 048
     Dates: start: 20070925, end: 20071004
  3. MEDROL [Concomitant]

REACTIONS (2)
  - INTERNATIONAL NORMALISED RATIO INCREASED [None]
  - SKIN INFECTION [None]
